FAERS Safety Report 10917776 (Version 1)
Quarter: 2015Q1

REPORT INFORMATION
  Report Type: Spontaneous
  Country: US (occurrence: US)
  Receive Date: 20150316
  Receipt Date: 20150316
  Transmission Date: 20150721
  Serious: No
  Sender: FDA-Public Use
  Company Number: US-GLAXOSMITHKLINE-US2015028277

PATIENT
  Age: 35 Year
  Sex: Female

DRUGS (26)
  1. LAMOTRIGINE PROLONGED-RELEASE TABLET [Suspect]
     Active Substance: LAMOTRIGINE
     Indication: MIGRAINE
     Dosage: D300 MG, UNK
     Route: 048
     Dates: start: 201411
  2. POTASSIUM [Concomitant]
     Active Substance: POTASSIUM
  3. AMITRIPTYLIN [Concomitant]
     Active Substance: AMITRIPTYLINE
  4. B12 INJECTION [Concomitant]
  5. EPIPEN [Concomitant]
     Active Substance: EPINEPHRINE
  6. ALPRAZOLAM. [Concomitant]
     Active Substance: ALPRAZOLAM
  7. LORATIDINE [Concomitant]
     Active Substance: LORATADINE
  8. RANITIDINE [Concomitant]
     Active Substance: RANITIDINE\RANITIDINE HYDROCHLORIDE
  9. FUROSEMIDE. [Concomitant]
     Active Substance: FUROSEMIDE
  10. IBUPROFEN. [Concomitant]
     Active Substance: IBUPROFEN
  11. LORAZEPAM INJECTION [Concomitant]
  12. MONTELUKAST [Concomitant]
     Active Substance: MONTELUKAST SODIUM
  13. NUBAINE [Concomitant]
  14. PHENTERMINE [Concomitant]
     Active Substance: PHENTERMINE
  15. RELPAX [Concomitant]
     Active Substance: ELETRIPTAN HYDROBROMIDE
  16. LAMOTRIGINE PROLONGED-RELEASE TABLET [Suspect]
     Active Substance: LAMOTRIGINE
     Dosage: 250 MG, QD
     Route: 048
     Dates: start: 201411
  17. FLUOXETINE [Concomitant]
     Active Substance: FLUOXETINE\FLUOXETINE HYDROCHLORIDE
  18. HYDROCODONE [Concomitant]
     Active Substance: HYDROCODONE
  19. OLANZAPINE. [Concomitant]
     Active Substance: OLANZAPINE
  20. ONDANSETRON [Concomitant]
     Active Substance: ONDANSETRON
  21. RESVERATROL [Concomitant]
     Active Substance: RESVERATROL
  22. SIMVASTATIN. [Concomitant]
     Active Substance: SIMVASTATIN
  23. TIZANIDINE (TIZANIDINE) [Concomitant]
     Active Substance: TIZANIDINE
  24. LAMICTAL XR [Suspect]
     Active Substance: LAMOTRIGINE
     Indication: MIGRAINE
     Dosage: UNK
  25. PHENERGAN INJECTION [Concomitant]
  26. TORADOL [Concomitant]
     Active Substance: KETOROLAC TROMETHAMINE

REACTIONS (10)
  - Asthenopia [Not Recovered/Not Resolved]
  - Infection [Unknown]
  - Head injury [Recovered/Resolved]
  - Skin ulcer [Recovered/Resolved]
  - Headache [Not Recovered/Not Resolved]
  - Memory impairment [Not Recovered/Not Resolved]
  - Cognitive disorder [Not Recovered/Not Resolved]
  - Eye pain [Not Recovered/Not Resolved]
  - Diplopia [Not Recovered/Not Resolved]
  - Fall [Recovered/Resolved]

NARRATIVE: CASE EVENT DATE: 201411
